FAERS Safety Report 8491481 (Version 2)
Quarter: 2012Q4

REPORT INFORMATION
  Report Type: 
  Country: US (occurrence: US)
  Receive Date: 20120403
  Receipt Date: 20120912
  Transmission Date: 20130627
  Serious: Yes (Hospitalization)
  Sender: FDA-Public Use
  Company Number: US-BAYER-2012-029582

PATIENT
  Age: 21 Year
  Sex: Female
  Weight: 72.56 kg

DRUGS (11)
  1. YAZ [Suspect]
     Indication: PREMENSTRUAL SYNDROME
     Dosage: UNK
     Dates: start: 200804, end: 200904
  2. PENICILLIN V POTASSIUM [Concomitant]
     Dosage: 500 mg, UNK
     Route: 048
     Dates: start: 20090605
  3. NAPROXEN SODIUM [Concomitant]
     Dosage: 550 mg, UNK
     Route: 048
     Dates: start: 20090605
  4. MELOXICAM [Concomitant]
     Dosage: 15 mg, 1 tab every day
     Route: 048
     Dates: start: 20090608
  5. HYDROCODONE W/APAP [Concomitant]
     Dosage: 5mg/500mg 1-2 tab every 4-6 hours
     Route: 048
     Dates: start: 20090608
  6. LOPERAMIDE [Concomitant]
     Dosage: 2 mg, UNK
     Route: 048
     Dates: start: 20090719
  7. CIPROFLOXACIN [Concomitant]
     Dosage: 500 mg, UNK
     Route: 048
     Dates: start: 20090719
  8. AMOXICILLIN [Concomitant]
     Dosage: 500 mg, UNK
     Route: 048
     Dates: start: 20090730
  9. PERCOCET [Concomitant]
  10. MOTRIN [Concomitant]
  11. LEVAQUIN [Concomitant]

REACTIONS (11)
  - Cholelithiasis [None]
  - Cholecystitis chronic [None]
  - Bile duct stone [None]
  - Biliary colic [None]
  - Pain [None]
  - Injury [None]
  - Psychological trauma [None]
  - Emotional distress [None]
  - Anxiety [None]
  - Fear [None]
  - Anhedonia [None]
